FAERS Safety Report 6258416-7 (Version None)
Quarter: 2009Q3

REPORT INFORMATION
  Report Type: 
  Country: None (occurrence: None)
  Receive Date: 20090707
  Receipt Date: 20090626
  Transmission Date: 20100115
  Serious: Yes (Death, Life-Threatening)
  Sender: FDA-Public Use
  Company Number: JP-PFIZER INC-2009234536

PATIENT
  Age: 72 Year

DRUGS (6)
  1. SILDENAFIL CITRATE [Suspect]
     Indication: PULMONARY HYPERTENSION
     Dosage: 20 MG, 3X/DAY
     Route: 048
     Dates: start: 20080520
  2. TRACLEER [Concomitant]
     Dates: start: 20070806, end: 20081123
  3. DORNER [Concomitant]
     Dates: start: 20070918, end: 20081123
  4. SPIRIVA [Concomitant]
     Dates: start: 20070409, end: 20081123
  5. WARFARIN [Concomitant]
     Dates: start: 20070409, end: 20081123
  6. LASIX [Concomitant]
     Dates: start: 20071003, end: 20081123

REACTIONS (3)
  - CONDITION AGGRAVATED [None]
  - HAEMOGLOBIN DECREASED [None]
  - PULMONARY HYPERTENSION [None]
